FAERS Safety Report 22341583 (Version 1)
Quarter: 2023Q2

REPORT INFORMATION
  Report Type: Spontaneous
  Country: US (occurrence: US)
  Receive Date: 20230518
  Receipt Date: 20230518
  Transmission Date: 20230722
  Serious: No
  Sender: FDA-Public Use
  Company Number: US-GALDERMA-US2023004808

PATIENT

DRUGS (3)
  1. PROACTIV MD ADAPALENE ACNE TREATMENT [Suspect]
     Active Substance: ADAPALENE
     Indication: Product used for unknown indication
     Dosage: 1 DOSAGE FORM, QD
     Route: 061
     Dates: start: 20230312, end: 20230314
  2. Proactiv MD Ultra Gentle Cleanser [Concomitant]
     Indication: Product used for unknown indication
     Dosage: 1 DOSAGE FORM, QD, DAILY
     Route: 061
     Dates: start: 20230312, end: 20230314
  3. Proactiv MD Ultra Hydrating Moisturizer [Concomitant]
     Indication: Product used for unknown indication
     Dosage: 1 DOSAGE FORM, QD, DAILY
     Route: 061
     Dates: start: 20230312, end: 20230314

REACTIONS (5)
  - Skin exfoliation [Recovering/Resolving]
  - Erythema [Recovering/Resolving]
  - Periorbital swelling [Recovering/Resolving]
  - Skin swelling [Recovering/Resolving]
  - Skin irritation [Recovering/Resolving]

NARRATIVE: CASE EVENT DATE: 20230314
